FAERS Safety Report 11319143 (Version 5)
Quarter: 2015Q4

REPORT INFORMATION
  Report Type: Spontaneous
  Country: US (occurrence: US)
  Receive Date: 20150729
  Receipt Date: 20151208
  Transmission Date: 20160304
  Serious: No
  Sender: FDA-Public Use
  Company Number: US-ACTELION PHARMACEUTICALS US, INC.-A-US2014-107315

PATIENT
  Age: 53 Year
  Sex: Female

DRUGS (8)
  1. OPSUMIT [Suspect]
     Active Substance: MACITENTAN
     Indication: PULMONARY ARTERIAL HYPERTENSION
     Dosage: 10 MG, QD
     Route: 048
     Dates: start: 20140428
  2. VELETRI [Suspect]
     Active Substance: EPOPROSTENOL
     Dosage: 50 NG/KG, PER MIN
     Route: 042
     Dates: start: 20141016
  3. REMODULIN [Concomitant]
     Active Substance: TREPROSTINIL
  4. ASPIRIN. [Concomitant]
     Active Substance: ASPIRIN
     Dosage: 81 MG, UNK
     Route: 048
     Dates: start: 20140428
  5. ADCIRCA [Concomitant]
     Active Substance: TADALAFIL
     Dosage: 40 MG, UNK
     Route: 048
     Dates: start: 20140608
  6. XARELTO [Concomitant]
     Active Substance: RIVAROXABAN
  7. VELETRI [Suspect]
     Active Substance: EPOPROSTENOL
     Indication: PULMONARY ARTERIAL HYPERTENSION
     Dosage: 53 NG/KG, PER MIN
     Route: 048
     Dates: start: 20141016, end: 201510
  8. DILTIAZEM HCL [Concomitant]
     Active Substance: DILTIAZEM HYDROCHLORIDE
     Dosage: 360 MG, QD
     Route: 048
     Dates: start: 20140428

REACTIONS (11)
  - Arthralgia [Unknown]
  - Respiratory tract congestion [Unknown]
  - Abdominal pain upper [Unknown]
  - Dyspnoea [Unknown]
  - Diarrhoea [Unknown]
  - Headache [Recovering/Resolving]
  - Eye allergy [Recovering/Resolving]
  - Nausea [Unknown]
  - Pain in jaw [Unknown]
  - Vomiting [Recovering/Resolving]
  - Flushing [Unknown]
